FAERS Safety Report 5509732-5 (Version None)
Quarter: 2007Q4

REPORT INFORMATION
  Report Type: 
  Country: None (occurrence: None)
  Receive Date: 20071107
  Receipt Date: 20071107
  Transmission Date: 20080405
  Serious: Yes (Hospitalization, Other)
  Sender: FDA-Public Use
  Company Number: None

PATIENT
  Age: 53 Year
  Sex: Male
  Weight: 88.4514 kg

DRUGS (6)
  1. KINERET [Suspect]
     Indication: JUVENILE ARTHRITIS
     Dosage: 100MG. Q.D./S.C.
     Route: 058
     Dates: start: 20070701, end: 20070801
  2. KINERET [Suspect]
     Indication: PSORIATIC ARTHROPATHY
     Dosage: 100MG. Q.D./S.C.
     Route: 058
     Dates: start: 20070701, end: 20070801
  3. DOLOBID [Concomitant]
  4. COZAAR [Concomitant]
  5. AZULFIDINE [Concomitant]
  6. ISOCORT [Concomitant]

REACTIONS (5)
  - INJECTION SITE ABSCESS [None]
  - INJECTION SITE FIBROSIS [None]
  - INJECTION SITE REACTION [None]
  - MUSCULOSKELETAL DISORDER [None]
  - SKIN DISORDER [None]
